FAERS Safety Report 11333377 (Version 1)
Quarter: 2015Q3

REPORT INFORMATION
  Report Type: Spontaneous
  Country: US (occurrence: US)
  Receive Date: 20150803
  Receipt Date: 20150803
  Transmission Date: 20151125
  Serious: No
  Sender: FDA-Public Use
  Company Number: US-ELI_LILLY_AND_COMPANY-US200801006401

PATIENT
  Age: 28 Year
  Sex: Male

DRUGS (1)
  1. ZYPREXA [Suspect]
     Active Substance: OLANZAPINE
     Indication: BIPOLAR DISORDER
     Dosage: 15 MG, UNK

REACTIONS (6)
  - Tardive dyskinesia [Unknown]
  - Weight increased [Unknown]
  - Muscle spasms [Unknown]
  - Tongue movement disturbance [Unknown]
  - Dysphagia [Unknown]
  - Somnolence [Unknown]
